FAERS Safety Report 6403132-1 (Version None)
Quarter: 2009Q4

REPORT INFORMATION
  Report Type: 
  Country: None (occurrence: None)
  Receive Date: 20091016
  Receipt Date: 20091009
  Transmission Date: 20100525
  Serious: Yes (Hospitalization)
  Sender: FDA-Public Use
  Company Number: US-JNJFOC-20091003939

PATIENT
  Sex: Female
  Weight: 58.97 kg

DRUGS (9)
  1. DURAGESIC-100 [Suspect]
     Indication: AUTONOMIC NEUROPATHY
     Route: 062
     Dates: start: 20010101, end: 20091001
  2. TOPAMAX [Concomitant]
     Indication: NEUROPATHY PERIPHERAL
     Route: 048
  3. TRAMADOL HCL [Concomitant]
     Indication: NEURALGIA
     Route: 048
  4. HYDROCODONE [Concomitant]
     Indication: PAIN
     Dosage: 10/325 MG
     Route: 048
  5. ALLEGRA [Concomitant]
     Indication: MULTIPLE ALLERGIES
     Route: 048
  6. TIZANIDINE HCL [Concomitant]
     Indication: MUSCLE SPASMS
     Route: 048
  7. CLONAZEPAM [Concomitant]
     Indication: NEUROPATHY PERIPHERAL
     Route: 048
  8. VITAMIN [Concomitant]
     Route: 048
  9. ADVIL PM [Concomitant]
     Indication: SLEEP DISORDER
     Route: 048

REACTIONS (4)
  - CONSTIPATION [None]
  - HYPOTENSION [None]
  - NEUROPATHY PERIPHERAL [None]
  - OESOPHAGEAL DISORDER [None]
